FAERS Safety Report 26000309 (Version 3)
Quarter: 2025Q4

REPORT INFORMATION
  Report Type: Report from Study
  Country: BR (occurrence: BR)
  Receive Date: 20251105
  Receipt Date: 20251124
  Transmission Date: 20260117
  Serious: No
  Sender: SANOFI AVENTIS
  Company Number: BR-SANOFI-02704712

PATIENT
  Age: 77 Year
  Sex: Female

DRUGS (9)
  1. DUPILUMAB [Suspect]
     Active Substance: DUPILUMAB
     Indication: Chronic obstructive pulmonary disease
     Dosage: 300 MG, QOW
     Route: 058
     Dates: start: 202412, end: 20251021
  2. XARELTO [Concomitant]
     Active Substance: RIVAROXABAN
     Indication: Pulmonary embolism
     Dosage: 20 MG, QD
     Route: 048
     Dates: start: 2018
  3. ACETYLCYSTEINE [Concomitant]
     Active Substance: ACETYLCYSTEINE
     Indication: Chronic obstructive pulmonary disease
     Dosage: 600.000MG Q12H (TWICE DAILY, IN THE MORNING AND AT NIGHT)
     Route: 048
     Dates: start: 2014
  4. BAMIFYLLINE HYDROCHLORIDE [Concomitant]
     Active Substance: BAMIFYLLINE HYDROCHLORIDE
     Indication: Chronic obstructive pulmonary disease
     Dosage: 300.000MG Q12H (1 TABLET IN THE MORNING AND ONE AT NIGHT)
     Route: 048
     Dates: start: 2022
  5. SAXENDA [Concomitant]
     Active Substance: LIRAGLUTIDE
     Route: 058
  6. ENOXAPARIN SODIUM [Concomitant]
     Active Substance: ENOXAPARIN SODIUM
     Indication: Pulmonary embolism
     Dosage: UNK
     Route: 058
     Dates: start: 2018
  7. OLODATEROL HYDROCHLORIDE\TIOTROPIUM BROMIDE MONOHYDRATE [Concomitant]
     Active Substance: OLODATEROL HYDROCHLORIDE\TIOTROPIUM BROMIDE MONOHYDRATE
     Dosage: UNK
  8. PROLINA [Concomitant]
     Dosage: UNK
     Route: 058
  9. INDACATEROL MALEATE [Concomitant]
     Active Substance: INDACATEROL MALEATE
     Indication: Chronic obstructive pulmonary disease
     Dosage: UNK, QD
     Route: 002

REACTIONS (3)
  - Injection site pain [Unknown]
  - Device issue [Unknown]
  - Dyspnoea exertional [Unknown]

NARRATIVE: CASE EVENT DATE: 20251021
